FAERS Safety Report 9741570 (Version 1)
Quarter: 2013Q4

REPORT INFORMATION
  Report Type: Spontaneous
  Country: FR (occurrence: FR)
  Receive Date: 20131210
  Receipt Date: 20131210
  Transmission Date: 20140711
  Serious: Yes (Other)
  Sender: FDA-Public Use
  Company Number: FR-ROCHE-1315802

PATIENT
  Age: 30 Year
  Sex: Female

DRUGS (2)
  1. XOLAIR [Suspect]
     Indication: URTICARIA
     Route: 065
     Dates: start: 20131016
  2. XOLAIR [Suspect]
     Route: 065
     Dates: start: 20131113

REACTIONS (4)
  - Face oedema [Recovered/Resolved]
  - Paraesthesia [Recovered/Resolved]
  - Urticaria [Recovered/Resolved]
  - Off label use [Unknown]
